FAERS Safety Report 7207306-1 (Version None)
Quarter: 2011Q1

REPORT INFORMATION
  Report Type: 
  Country: None (occurrence: None)
  Receive Date: 20110103
  Receipt Date: 20101230
  Transmission Date: 20110831
  Serious: Yes (Other)
  Sender: FDA-Public Use
  Company Number: FR-ROCHE-750900

PATIENT
  Age: 37 Year
  Sex: Male

DRUGS (3)
  1. ROCEPHIN [Suspect]
     Route: 065
     Dates: start: 20101012, end: 20101014
  2. TAVANIC [Suspect]
     Route: 065
     Dates: start: 20101015, end: 20101025
  3. PRIMPERAN TAB [Concomitant]

REACTIONS (2)
  - DRUG INEFFECTIVE [None]
  - HYPERKALAEMIA [None]
